FAERS Safety Report 6320305-7 (Version None)
Quarter: 2009Q3

REPORT INFORMATION
  Report Type: 
  Country: None (occurrence: None)
  Receive Date: 20090822
  Receipt Date: 20081031
  Transmission Date: 20100115
  Serious: No
  Sender: FDA-Public Use
  Company Number: US-ABBOTT-08P-163-0485132-00

PATIENT
  Sex: Male

DRUGS (14)
  1. NIASPAN [Suspect]
     Indication: BLOOD TRIGLYCERIDES INCREASED
     Dates: start: 20081001
  2. ASPIRIN [Concomitant]
     Indication: DRUG USE FOR UNKNOWN INDICATION
  3. METFORMIN [Concomitant]
     Indication: DIABETES MELLITUS
  4. LISINOPRIL [Concomitant]
     Indication: DIABETES MELLITUS
  5. AMIODARONE [Concomitant]
     Indication: IMPLANTABLE DEFIBRILLATOR INSERTION
  6. ISOSORBIDE DINITRATE [Concomitant]
     Indication: DRUG USE FOR UNKNOWN INDICATION
  7. CARVEDILOL [Concomitant]
     Indication: CARDIAC DISORDER
  8. FUROSEMIDE [Concomitant]
     Indication: CARDIAC DISORDER
  9. DIGOXIN [Concomitant]
     Indication: DRUG USE FOR UNKNOWN INDICATION
  10. ESOMEPRAZOLE MAGNESIUM [Concomitant]
     Indication: GASTROOESOPHAGEAL REFLUX DISEASE
  11. WARFARIN [Concomitant]
     Indication: ANTICOAGULANT THERAPY
  12. M.V.I. [Concomitant]
     Indication: DRUG USE FOR UNKNOWN INDICATION
  13. FISH OIL [Concomitant]
     Indication: DRUG USE FOR UNKNOWN INDICATION
  14. PREDNISOLONE [Concomitant]
     Indication: NEUROPATHY PERIPHERAL

REACTIONS (3)
  - DIARRHOEA [None]
  - FLUSHING [None]
  - NECK PAIN [None]
